FAERS Safety Report 5168490-7 (Version None)
Quarter: 2006Q4

REPORT INFORMATION
  Report Type: 
  Country: None (occurrence: None)
  Receive Date: 20061208
  Receipt Date: 20061103
  Transmission Date: 20070319
  Serious: Yes (Death, Life-Threatening, Hospitalization)
  Sender: FDA-Public Use
  Company Number: ES-NOVOPROD-258255

PATIENT
  Sex: Female
  Weight: 89 kg

DRUGS (13)
  1. NOVOSEVEN [Suspect]
     Indication: POST PROCEDURAL HAEMORRHAGE
     Dosage: 1 DOSE
     Route: 042
     Dates: start: 20061025, end: 20061025
  2. ENOXAPARIN SODIUM [Concomitant]
     Dosage: 120 MG, QD
     Route: 060
     Dates: start: 20061029
  3. ASPIRIN [Concomitant]
     Dosage: 100 MG, QD
     Route: 048
     Dates: start: 20061029
  4. ACENOCUMAROL [Concomitant]
     Dosage: 3 MG, QD
     Route: 048
     Dates: start: 20061027
  5. CEFTRIAXONE [Concomitant]
     Dosage: 4 G, QD
     Route: 042
     Dates: start: 20061102
  6. FLUCONAZOLE [Concomitant]
     Dosage: 400 MG, QD
     Route: 042
     Dates: start: 20061104
  7. LINEZOLID [Concomitant]
     Dosage: 1200 MG, QD
     Route: 042
     Dates: start: 20061105
  8. IMIPENEM [Concomitant]
     Dosage: 2 G, QD
     Route: 042
     Dates: start: 20061115
  9. IMIPENEM [Concomitant]
     Dosage: 500 MG / 6H
     Route: 042
     Dates: start: 20061115, end: 20061116
  10. HETASTARCH IN SODIUM CHLORIDE [Concomitant]
     Dosage: 1300 ML, SINGLE
     Dates: start: 20061115, end: 20061116
  11. DEXTROSE [Concomitant]
     Dosage: 1000 ML, SINGLE
     Route: 042
     Dates: start: 20061115, end: 20061116
  12. MANITOL [Concomitant]
     Dosage: 350 ML, SINGLE
     Route: 042
     Dates: start: 20061115, end: 20061116
  13. HYDROCORTISONE [Concomitant]
     Dosage: 200 MG, SINGLE
     Route: 042
     Dates: start: 20061115, end: 20061116

REACTIONS (3)
  - CARDIAC TAMPONADE [None]
  - RENAL FAILURE ACUTE [None]
  - SEPTIC SHOCK [None]
